FAERS Safety Report 5612880-2 (Version None)
Quarter: 2008Q1

REPORT INFORMATION
  Report Type: 
  Country: None (occurrence: None)
  Receive Date: 20080204
  Receipt Date: 20080129
  Transmission Date: 20080703
  Serious: Yes (Other)
  Sender: FDA-Public Use
  Company Number: JP-BOEHRINGER INGELHEIM GMBH, GERMANY-2008-DE-00573GD

PATIENT
  Age: 75 Year
  Sex: Male

DRUGS (3)
  1. MORPHINE [Suspect]
     Indication: CANCER PAIN
  2. HALOPERIDOL [Suspect]
     Indication: PSYCHOMOTOR HYPERACTIVITY
     Route: 030
  3. HALOPERIDOL [Suspect]
     Indication: DELIRIUM

REACTIONS (4)
  - DELIRIUM [None]
  - DYSPHAGIA [None]
  - MUSCLE RIGIDITY [None]
  - PSYCHOMOTOR HYPERACTIVITY [None]
